FAERS Safety Report 8971039 (Version 2)
Quarter: 2013Q1

REPORT INFORMATION
  Report Type: Report from Study
  Country: US (occurrence: US)
  Receive Date: 20121218
  Receipt Date: 20130102
  Transmission Date: 20140127
  Serious: Yes (Other)
  Sender: FDA-Public Use
  Company Number: US-PFIZER INC-2011096393

PATIENT
  Age: 75 Year
  Sex: Female
  Weight: 56.7 kg

DRUGS (5)
  1. LYRICA [Suspect]
     Indication: NEUROPATHY PERIPHERAL
     Dosage: 200 MG, 2X/DAY
     Route: 048
  2. LYRICA [Suspect]
     Indication: BURNING SENSATION
  3. LYRICA [Suspect]
     Indication: PARAESTHESIA
  4. OXYBUTYNIN [Concomitant]
     Indication: BLADDER DISORDER
     Dosage: UNK
  5. IBUPROFEN [Concomitant]
     Dosage: UNK

REACTIONS (5)
  - Mental impairment [Unknown]
  - Memory impairment [Unknown]
  - Dysgraphia [Unknown]
  - Paraesthesia [Unknown]
  - Wrong technique in drug usage process [Unknown]
